FAERS Safety Report 7400843-6 (Version None)
Quarter: 2011Q2

REPORT INFORMATION
  Report Type: 
  Country: None (occurrence: None)
  Receive Date: 20110407
  Receipt Date: 20110330
  Transmission Date: 20111010
  Serious: Yes (Other)
  Sender: FDA-Public Use
  Company Number: PHHY2011CH19709

PATIENT
  Age: 88 Year
  Sex: Female

DRUGS (2)
  1. SIMVASTATIN [Suspect]
     Dosage: 40 MG, QD
  2. CLARITHROMYCIN [Suspect]
     Indication: BRONCHITIS

REACTIONS (11)
  - MYALGIA [None]
  - RENAL IMPAIRMENT [None]
  - MUSCULAR WEAKNESS [None]
  - MUSCLE TWITCHING [None]
  - DRUG INTERACTION [None]
  - PIGMENTATION DISORDER [None]
  - RHABDOMYOLYSIS [None]
  - HEPATIC FUNCTION ABNORMAL [None]
  - HEPATOCELLULAR INJURY [None]
  - PAIN [None]
  - ATRIAL FIBRILLATION [None]
